FAERS Safety Report 9570179 (Version 2)
Quarter: 2013Q3

REPORT INFORMATION
  Report Type: Spontaneous
  Country: US (occurrence: US)
  Receive Date: 20130930
  Receipt Date: 20130930
  Transmission Date: 20140515
  Serious: No
  Sender: FDA-Public Use
  Company Number: US-AMGEN-USASP2013051372

PATIENT
  Age: 53 Year
  Sex: Female
  Weight: 65.76 kg

DRUGS (6)
  1. ENBREL [Suspect]
     Indication: PRODUCT USED FOR UNKNOWN INDICATION
     Dosage: 50 MG, QWK
     Route: 058
     Dates: start: 2007
  2. HYDROCODONE W/ACETAMINOPHEN [Concomitant]
     Dosage: 7.5-750
  3. GLUCOSAMINE + CHONDROITIN          /01430901/ [Concomitant]
     Dosage: UNK
  4. MULTIVITAMINS [Concomitant]
     Dosage: UNK
  5. IBUPROFEN [Concomitant]
     Dosage: 200 MG, UNK
  6. ALEVE [Concomitant]
     Dosage: 220 MG, UNK

REACTIONS (3)
  - Malaise [Recovered/Resolved]
  - Injection site bruising [Unknown]
  - Upper respiratory tract infection [Recovered/Resolved]
